FAERS Safety Report 9402751 (Version 2)
Quarter: 2013Q3

REPORT INFORMATION
  Report Type: Spontaneous
  Country: FR (occurrence: FR)
  Receive Date: 20130716
  Receipt Date: 20130719
  Transmission Date: 20140515
  Serious: Yes (Hospitalization)
  Sender: FDA-Public Use
  Company Number: FR-PFIZER INC-2013206581

PATIENT
  Age: 91 Year
  Sex: Male

DRUGS (12)
  1. TRIATEC [Suspect]
     Indication: CARDIAC FAILURE
     Dosage: 2.5 MG, DAILY
     Route: 048
     Dates: start: 201302, end: 20130312
  2. TRIATEC [Suspect]
     Dosage: UNK
     Route: 048
     Dates: start: 20130313, end: 201304
  3. LASILIX SPECIAL [Suspect]
     Indication: CARDIAC FAILURE
     Dosage: 250 MG, DAILY
     Route: 048
     Dates: start: 201302, end: 201304
  4. BISOCE [Suspect]
     Indication: CARDIAC FAILURE
     Dosage: 2.5 MG, DAILY
     Route: 048
     Dates: start: 201302, end: 201304
  5. ESIDREX [Suspect]
     Indication: HYPERTENSION
     Dosage: 25 MG, DAILY
     Route: 048
     Dates: end: 201304
  6. PREVISCAN [Concomitant]
     Dosage: UNK
  7. DIFFU K [Concomitant]
  8. ZYLORIC [Concomitant]
     Dosage: UNK
  9. XATRAL [Concomitant]
     Dosage: UNK
  10. ATARAX [Concomitant]
     Dosage: UNK
  11. SPIRIVA [Concomitant]
     Dosage: UNK
  12. FORMOTEROL [Concomitant]
     Dosage: UNK

REACTIONS (12)
  - Metabolic acidosis [Recovered/Resolved]
  - Blood bicarbonate decreased [Recovered/Resolved]
  - Hyperkalaemia [Recovered/Resolved]
  - Renal failure acute [Recovered/Resolved]
  - Blood creatine increased [Recovered/Resolved]
  - Dehydration [Recovered/Resolved]
  - General physical health deterioration [Recovered/Resolved]
  - Hypotension [Recovered/Resolved]
  - Vomiting [Recovered/Resolved]
  - Diarrhoea [Recovered/Resolved]
  - Blood urea increased [Recovered/Resolved]
  - Blood creatinine increased [Recovered/Resolved]
